FAERS Safety Report 7980866-9 (Version None)
Quarter: 2011Q4

REPORT INFORMATION
  Report Type: 
  Country: None (occurrence: None)
  Receive Date: 20111214
  Receipt Date: 20111202
  Transmission Date: 20120403
  Serious: Yes (Hospitalization)
  Sender: FDA-Public Use
  Company Number: US-BAYER-2011-117800

PATIENT
  Age: 51 Year
  Sex: Male

DRUGS (2)
  1. ATENOLOL [Concomitant]
  2. BETASERON [Suspect]
     Indication: RELAPSING-REMITTING MULTIPLE SCLEROSIS
     Dosage: 8 MIU, UNK
     Route: 058
     Dates: start: 20060413

REACTIONS (4)
  - PLEURAL EFFUSION [None]
  - HYPERTENSION [None]
  - DYSPNOEA [None]
  - HYPERTENSIVE CRISIS [None]
